FAERS Safety Report 23245205 (Version 1)
Quarter: 2023Q4

REPORT INFORMATION
  Report Type: Report from Study
  Country: CA (occurrence: CA)
  Receive Date: 20231130
  Receipt Date: 20231130
  Transmission Date: 20240110
  Serious: Yes (Other)
  Sender: FDA-Public Use
  Company Number: CA-JNJFOC-20230200786

PATIENT
  Age: 30 Year
  Sex: Female
  Weight: 76 kg

DRUGS (2)
  1. STELARA [Suspect]
     Active Substance: USTEKINUMAB
     Indication: Crohn^s disease
     Dosage: BATCH NUMBER NCS5DMA EXPIRY: 31-JUL-2025, 31-OCT-2025, 28-FEB-2026, FEB-2026?PATIENT SCHEDULED APPOI
     Route: 058
     Dates: start: 20170122
  2. STELARA [Suspect]
     Active Substance: USTEKINUMAB
     Dosage: PATIENT SCHEDULED APPOINTMENT FOR 01-NOV-2023 CANCELLED
     Route: 058

REACTIONS (9)
  - Postoperative abscess [Unknown]
  - Breech presentation [Unknown]
  - Exposure during pregnancy [Recovered/Resolved]
  - Faeces soft [Not Recovered/Not Resolved]
  - Constipation [Recovered/Resolved]
  - Influenza like illness [Not Recovered/Not Resolved]
  - Insomnia [Unknown]
  - Abdominal pain [Recovered/Resolved]
  - Diarrhoea [Not Recovered/Not Resolved]

NARRATIVE: CASE EVENT DATE: 20230101
